FAERS Safety Report 23553095 (Version 2)
Quarter: 2024Q2

REPORT INFORMATION
  Report Type: Spontaneous
  Country: ES (occurrence: ES)
  Receive Date: 20240222
  Receipt Date: 20240610
  Transmission Date: 20240716
  Serious: Yes (Other)
  Sender: FDA-Public Use
  Company Number: ES-JNJFOC-20240250509

PATIENT
  Age: 34 Year
  Sex: Male
  Weight: 59 kg

DRUGS (7)
  1. RILPIVIRINE [Suspect]
     Active Substance: RILPIVIRINE
     Indication: HIV infection
     Dosage: FIRST ADMINISTRATION
     Route: 030
     Dates: start: 20230328
  2. RILPIVIRINE [Suspect]
     Active Substance: RILPIVIRINE
     Dosage: SECOND ADMINISTRATION
     Route: 030
  3. RILPIVIRINE [Suspect]
     Active Substance: RILPIVIRINE
     Dosage: LAST ADMINISTRATION DATE: 13-FEB-2024 (SEVENTH ADMINISTRATION)
     Route: 030
  4. CABOTEGRAVIR [Suspect]
     Active Substance: CABOTEGRAVIR
     Indication: HIV infection
     Dosage: FIRST ADMINISTRATION
     Route: 030
     Dates: start: 20230328
  5. CABOTEGRAVIR [Suspect]
     Active Substance: CABOTEGRAVIR
     Dosage: SECOND ADMINISTRATION
     Route: 030
  6. CABOTEGRAVIR [Suspect]
     Active Substance: CABOTEGRAVIR
     Dosage: LAST ADMINISTRATION DATE: 13-FEB-2024 (SEVENTH ADMINISTRATION)
     Route: 030
  7. AMOXICILLIN [Concomitant]
     Active Substance: AMOXICILLIN
     Indication: Tooth abscess

REACTIONS (2)
  - Blood catecholamines abnormal [Recovered/Resolved]
  - Pharyngotonsillitis [Unknown]

NARRATIVE: CASE EVENT DATE: 20240213
